FAERS Safety Report 7760394-6 (Version None)
Quarter: 2011Q3

REPORT INFORMATION
  Report Type: 
  Country: None (occurrence: None)
  Receive Date: 20110919
  Receipt Date: 20110907
  Transmission Date: 20111222
  Serious: Yes (Hospitalization)
  Sender: FDA-Public Use
  Company Number: PHHO2011FR13547

PATIENT
  Sex: Female
  Weight: 60 kg

DRUGS (9)
  1. MYCOPHENOLATE MOFETIL (CELLCEPT) [Suspect]
     Indication: RENAL TRANSPLANT
     Dosage: 1 G, BID
     Route: 048
     Dates: start: 20110710
  2. ESOMEPRAZOLE SODIUM [Concomitant]
     Dosage: UNK
     Route: 048
     Dates: start: 20110802
  3. LASIX [Concomitant]
     Dosage: UNK
     Route: 048
  4. FERROUS SULFATE TAB [Concomitant]
     Dosage: UNK
     Route: 048
  5. ASCORBIC ACID [Concomitant]
     Dosage: UNK
     Route: 048
  6. VALGANCICLOVIR [Concomitant]
     Dosage: 450 MG, UNK
     Route: 048
     Dates: start: 20110730
  7. PROGRAF [Concomitant]
     Indication: RENAL TRANSPLANT
  8. PREDNISONE [Concomitant]
     Indication: RENAL TRANSPLANT
     Dosage: 15 G, UNK
     Route: 048
     Dates: start: 20110710
  9. NEORAL [Suspect]
     Indication: RENAL TRANSPLANT
     Dosage: 375 MG, UNK
     Route: 048
     Dates: start: 20110715

REACTIONS (5)
  - LYMPHOCELE [None]
  - DIARRHOEA [None]
  - RENAL FAILURE ACUTE [None]
  - OVERDOSE [None]
  - POLLAKIURIA [None]
